FAERS Safety Report 5629852-4 (Version None)
Quarter: 2008Q1

REPORT INFORMATION
  Report Type: 
  Country: None (occurrence: None)
  Receive Date: 20080214
  Receipt Date: 20080128
  Transmission Date: 20080703
  Serious: Yes (Other)
  Sender: FDA-Public Use
  Company Number: URSO-2008-004

PATIENT
  Age: 78 Year
  Sex: Female

DRUGS (4)
  1. URSO 250 [Suspect]
     Dosage: 300 MG ORAL
     Route: 048
     Dates: start: 20070829, end: 20070905
  2. TAKEPRON [Concomitant]
  3. PROMAC [Concomitant]
  4. ARICEPT [Concomitant]

REACTIONS (1)
  - INTERSTITIAL LUNG DISEASE [None]
